FAERS Safety Report 4523085-0 (Version None)
Quarter: 2004Q4

REPORT INFORMATION
  Report Type: 
  Country: None (occurrence: None)
  Receive Date: 20041207
  Receipt Date: 20041207
  Transmission Date: 20050328
  Serious: No
  Sender: FDA-Public Use
  Company Number: None

PATIENT
  Sex: Male

DRUGS (2)
  1. TETRACYCLINE [Suspect]
     Indication: NASAL DISORDER
     Dosage: 500 MG PO Q8H
     Route: 048
     Dates: start: 20040726, end: 20040729
  2. TETRACYCLINE [Suspect]
     Indication: STAPHYLOCOCCAL INFECTION
     Dosage: 500 MG PO Q8H
     Route: 048
     Dates: start: 20040726, end: 20040729

REACTIONS (1)
  - SWELLING FACE [None]
